FAERS Safety Report 23820755 (Version 5)
Quarter: 2024Q2

REPORT INFORMATION
  Report Type: Spontaneous
  Country: CA (occurrence: None)
  Receive Date: 20240506
  Receipt Date: 20240605
  Transmission Date: 20240716
  Serious: Yes (Hospitalization)
  Sender: FDA-Public Use
  Company Number: CA-ROCHE-3556148

PATIENT
  Sex: Male

DRUGS (1)
  1. RITUXIMAB [Suspect]
     Active Substance: RITUXIMAB
     Indication: Product used for unknown indication
     Dosage: EVERY 15 DAYS, EVERY 6MONTHS
     Route: 065

REACTIONS (4)
  - Neuromyelitis optica spectrum disorder [Unknown]
  - Urinary incontinence [Unknown]
  - Anal incontinence [Unknown]
  - Drug ineffective [Unknown]
